FAERS Safety Report 4551829-0 (Version None)
Quarter: 2005Q1

REPORT INFORMATION
  Report Type: 
  Country: None (occurrence: None)
  Receive Date: 20050110
  Receipt Date: 20041227
  Transmission Date: 20050727
  Serious: Yes (Death)
  Sender: FDA-Public Use
  Company Number: MEDI-0002632

PATIENT
  Age: 20 Month
  Sex: Female
  Weight: 7.385 kg

DRUGS (3)
  1. SYNAGIS [Suspect]
     Indication: ANTIVIRAL PROPHYLAXIS
     Dosage: 1.1 ML, 1 IN 30 D, INTRAMUSCULAR
     Route: 030
     Dates: start: 20041008, end: 20041210
  2. SYNAGIS [Suspect]
     Indication: ANTIVIRAL PROPHYLAXIS
     Dosage: 1.1 ML, 1 IN 30 D, INTRAMUSCULAR
     Route: 030
     Dates: start: 20041008
  3. SYNAGIS [Suspect]
     Indication: ANTIVIRAL PROPHYLAXIS
     Dosage: 1.1 ML, 1 IN 30 D, INTRAMUSCULAR
     Route: 030
     Dates: start: 20041112

REACTIONS (1)
  - PNEUMONIA RESPIRATORY SYNCYTIAL VIRAL [None]
